FAERS Safety Report 17653573 (Version 1)
Quarter: 2020Q2

REPORT INFORMATION
  Report Type: Spontaneous
  Country: US (occurrence: US)
  Receive Date: 20200410
  Receipt Date: 20200410
  Transmission Date: 20200713
  Serious: No
  Sender: FDA-Public Use
  Company Number: US-SA-2020SA088577

PATIENT
  Age: 82 Year
  Sex: Male

DRUGS (12)
  1. LEVOTHYROXIN [Concomitant]
     Active Substance: LEVOTHYROXINE
  2. DUPIXENT [Suspect]
     Active Substance: DUPILUMAB
     Dosage: 300 MG, QOW
     Route: 058
     Dates: start: 20200122
  3. LANTUS [Concomitant]
     Active Substance: INSULIN GLARGINE
  4. MAGNESIUM [Concomitant]
     Active Substance: MAGNESIUM
  5. CARVEDILOL. [Concomitant]
     Active Substance: CARVEDILOL
  6. NIFEDIPINE. [Concomitant]
     Active Substance: NIFEDIPINE
  7. NOVOLOG [Concomitant]
     Active Substance: INSULIN ASPART
  8. TAMSULOSIN [Concomitant]
     Active Substance: TAMSULOSIN
  9. CONTOUR [ESOMEPRAZOLE MAGNESIUM] [Concomitant]
  10. FUROSEMIDE. [Concomitant]
     Active Substance: FUROSEMIDE
  11. LOSARTAN. [Concomitant]
     Active Substance: LOSARTAN
  12. SIMVASTATIN. [Concomitant]
     Active Substance: SIMVASTATIN

REACTIONS (2)
  - Condition aggravated [Not Recovered/Not Resolved]
  - Rash pruritic [Not Recovered/Not Resolved]

NARRATIVE: CASE EVENT DATE: 20200326
